FAERS Safety Report 7862456-1 (Version None)
Quarter: 2011Q4

REPORT INFORMATION
  Report Type: 
  Country: None (occurrence: None)
  Receive Date: 20111027
  Receipt Date: 20101105
  Transmission Date: 20120403
  Serious: No
  Sender: FDA-Public Use
  Company Number: US-AMGEN-USASP2010001469

PATIENT
  Age: 72 Year
  Sex: Female
  Weight: 70.748 kg

DRUGS (1)
  1. ENBREL [Suspect]
     Indication: RHEUMATOID ARTHRITIS
     Dosage: 50 MG, QWK
     Route: 058
     Dates: start: 20100812

REACTIONS (8)
  - FEELING JITTERY [None]
  - PALPITATIONS [None]
  - CHEST DISCOMFORT [None]
  - COUGH [None]
  - HEADACHE [None]
  - EMOTIONAL DISTRESS [None]
  - INJECTION SITE HAEMATOMA [None]
  - ARTHRALGIA [None]
